FAERS Safety Report 24170177 (Version 1)
Quarter: 2024Q3

REPORT INFORMATION
  Report Type: Spontaneous
  Country: IN (occurrence: IN)
  Receive Date: 20240803
  Receipt Date: 20240803
  Transmission Date: 20241016
  Serious: Yes (Other)
  Sender: Long Grove Pharmaceuticals
  Company Number: IN-Long Grove-000061

PATIENT
  Age: 54 Year
  Sex: Male

DRUGS (3)
  1. TRIAMCINOLONE ACETONIDE [Suspect]
     Active Substance: TRIAMCINOLONE ACETONIDE
     Indication: Product used for unknown indication
  2. VANCOMYCIN [Concomitant]
     Active Substance: VANCOMYCIN
     Dosage: 0.1 ML OF 1 MG VANCOMYCIN
  3. CEFTAZIDIME [Concomitant]
     Active Substance: CEFTAZIDIME
     Dosage: 1 ML OF 2.5 MG CEFTAZIDIME

REACTIONS (1)
  - Pseudoendophthalmitis [Unknown]
